FAERS Safety Report 10662257 (Version 1)
Quarter: 2014Q4

REPORT INFORMATION
  Report Type: Spontaneous
  Country: US (occurrence: US)
  Receive Date: 20141218
  Receipt Date: 20141218
  Transmission Date: 20150529
  Serious: No
  Sender: FDA-Public Use
  Company Number: US-PFIZER INC-2014346877

PATIENT
  Age: 5 Decade
  Sex: Female
  Weight: 57 kg

DRUGS (1)
  1. SKELAXIN [Suspect]
     Active Substance: METAXALONE
     Dosage: UNK
     Dates: start: 2009, end: 2010

REACTIONS (1)
  - Drug ineffective [Unknown]
